FAERS Safety Report 5443011-X (Version None)
Quarter: 2007Q3

REPORT INFORMATION
  Report Type: 
  Country: None (occurrence: None)
  Receive Date: 20070905
  Receipt Date: 20070827
  Transmission Date: 20080115
  Serious: Yes (Other)
  Sender: FDA-Public Use
  Company Number: PHHO2007BR13108

PATIENT
  Age: 6 Year
  Sex: Male
  Weight: 21 kg

DRUGS (2)
  1. FORASEQ [Suspect]
     Indication: CYSTIC FIBROSIS
     Dosage: 12/200 MCG
  2. BUDESONIDE [Concomitant]

REACTIONS (8)
  - DECREASED APPETITE [None]
  - DEPRESSED MOOD [None]
  - HYPERHIDROSIS [None]
  - INSOMNIA [None]
  - IRRITABILITY [None]
  - PSYCHOMOTOR HYPERACTIVITY [None]
  - TACHYCARDIA [None]
  - TREMOR [None]
